FAERS Safety Report 8243863 (Version 2)
Quarter: 2012Q4

REPORT INFORMATION
  Report Type: 
  Country: US (occurrence: US)
  Receive Date: 20111114
  Receipt Date: 20120917
  Transmission Date: 20130627
  Serious: Yes (Hospitalization)
  Sender: FDA-Public Use
  Company Number: US-US-EMD SERONO, INC.-7094587

PATIENT
  Sex: Female
  Weight: 82 kg

DRUGS (2)
  1. REBIF [Suspect]
     Indication: MULTIPLE SCLEROSIS
     Route: 058
     Dates: start: 20110525, end: 201106
  2. REBIF [Suspect]
     Route: 058
     Dates: start: 201106

REACTIONS (1)
  - Bladder prolapse [Not Recovered/Not Resolved]
